FAERS Safety Report 12756075 (Version 3)
Quarter: 2017Q1

REPORT INFORMATION
  Report Type: Spontaneous
  Country: US (occurrence: US)
  Receive Date: 20160916
  Receipt Date: 20170119
  Transmission Date: 20170428
  Serious: No
  Sender: FDA-Public Use
  Company Number: US-PFIZER INC-2016431353

PATIENT
  Age: 63 Year
  Sex: Female
  Weight: 69 kg

DRUGS (18)
  1. AMLODIPINE [Concomitant]
     Active Substance: AMLODIPINE BESYLATE
     Indication: BLOOD PRESSURE MANAGEMENT
     Dosage: 5 MG, 1X/DAY (AT NIGHT)
  2. LOSARTAN. [Concomitant]
     Active Substance: LOSARTAN
     Indication: BLOOD PRESSURE MANAGEMENT
     Dosage: 50 MG TWO AT NIGHT
  3. POTASSIUM [Concomitant]
     Active Substance: POTASSIUM
     Dosage: 99 MG, 2X/DAY
  4. SUTENT [Suspect]
     Active Substance: SUNITINIB MALATE
     Indication: RENAL CANCER STAGE IV
     Dosage: 50 MG, 1X/DAY; 4 WEEKS AND STOP FOR TWO WEEKS.
     Route: 048
     Dates: start: 20160819
  5. MIRTAPINE [Concomitant]
     Indication: BLOOD PRESSURE MANAGEMENT
     Dosage: 30 MG, 1X/DAY (AT NIGHT)
  6. VITAMIN D3 [Concomitant]
     Active Substance: CHOLECALCIFEROL
     Dosage: UNK, ONCE A WEEK
  7. MIRTAPINE [Concomitant]
     Indication: APPETITE DISORDER
  8. MIRTAPINE [Concomitant]
     Indication: SLEEP DISORDER
  9. HYDROCHLOROTHIAZIDE. [Concomitant]
     Active Substance: HYDROCHLOROTHIAZIDE
     Indication: BLOOD PRESSURE MANAGEMENT
     Dosage: 12.5 MG, 1X/DAY
  10. DIAZEPAM. [Concomitant]
     Active Substance: DIAZEPAM
     Indication: SLEEP DISORDER
  11. PERCOCET [Concomitant]
     Active Substance: ACETAMINOPHEN\OXYCODONE HYDROCHLORIDE
     Indication: PAIN
     Dosage: UNK; CAN TAKE UP TO 4 A DAY, BUT USUALLY ONLY TAKES 1
  12. PERCOCET [Concomitant]
     Active Substance: ACETAMINOPHEN\OXYCODONE HYDROCHLORIDE
     Indication: SLEEP DISORDER
  13. LEVOTHYROXINE. [Concomitant]
     Active Substance: LEVOTHYROXINE
     Indication: GOITRE
     Dosage: 112 UG, 1X/DAY (AT NIGHT)
  14. SERTRALINE [Concomitant]
     Active Substance: SERTRALINE HYDROCHLORIDE
     Indication: DEPRESSION
     Dosage: 100 MG, 1X/DAY (IN THE MORNING)
  15. VITAMIN B12 [Concomitant]
     Active Substance: CYANOCOBALAMIN
     Dosage: UNK, ONCE A WEEK
  16. SUTENT [Suspect]
     Active Substance: SUNITINIB MALATE
     Dosage: 50 MG, ONE CAPSULE, CYCLIC (DAILY FOR 28 DAYS, THEN 2 WEEKS OFF)
     Route: 048
     Dates: start: 2016
  17. LOMOTIL [Concomitant]
     Active Substance: ATROPINE SULFATE\DIPHENOXYLATE HYDROCHLORIDE
     Indication: DIARRHOEA
     Dosage: 2 MG, 2X/DAY
  18. DIAZEPAM. [Concomitant]
     Active Substance: DIAZEPAM
     Indication: MUSCLE RELAXANT THERAPY
     Dosage: 10 MG, 1X/DAY (AT NIGHT)

REACTIONS (11)
  - Pre-existing condition improved [Unknown]
  - Insomnia [Unknown]
  - Blood pressure increased [Unknown]
  - Therapeutic response unexpected [Unknown]
  - Depression [Unknown]
  - Malaise [Recovering/Resolving]
  - Decubitus ulcer [Recovering/Resolving]
  - Diarrhoea [Unknown]
  - Fatigue [Unknown]
  - Memory impairment [Unknown]
  - Scab [Unknown]

NARRATIVE: CASE EVENT DATE: 20170110
